FAERS Safety Report 5197510-9 (Version None)
Quarter: 2006Q4

REPORT INFORMATION
  Report Type: 
  Country: None (occurrence: None)
  Receive Date: 20060926
  Receipt Date: 20050822
  Transmission Date: 20070319
  Serious: Yes (Other)
  Sender: FDA-Public Use
  Company Number: 05-000636

PATIENT
  Age: 19 Year
  Sex: Female

DRUGS (1)
  1. DORYX [Suspect]
     Indication: ACNE
     Dosage: 100 MG, QD, ORAL
     Route: 048
     Dates: start: 20050815, end: 20050823

REACTIONS (3)
  - DYSPHAGIA [None]
  - OESOPHAGEAL ULCER [None]
  - PHARYNGOLARYNGEAL PAIN [None]
